FAERS Safety Report 6386269-5 (Version None)
Quarter: 2009Q3

REPORT INFORMATION
  Report Type: 
  Country: None (occurrence: None)
  Receive Date: 20090929
  Receipt Date: 20090628
  Transmission Date: 20100115
  Serious: Yes (Other)
  Sender: FDA-Public Use
  Company Number: 282687

PATIENT
  Age: 65 Year
  Sex: Female

DRUGS (6)
  1. LUCENTIS [Suspect]
     Indication: MACULAR DEGENERATION
     Dosage: INTRAOCULAR
     Route: 031
  2. AVASTIN [Suspect]
     Indication: MACULAR DEGENERATION
  3. ZYMAR [Concomitant]
  4. ACTOPLUS MET (METFORMIN, PIOGLITAZONE HYDROCHLORIDE) [Concomitant]
  5. HYZAAR [Concomitant]
  6. INSULIN (INSULIN) [Concomitant]

REACTIONS (1)
  - ENDOPHTHALMITIS [None]
